FAERS Safety Report 9698533 (Version 2)
Quarter: 2013Q4

REPORT INFORMATION
  Report Type: Spontaneous
  Country: CA (occurrence: CA)
  Receive Date: 20131120
  Receipt Date: 20131202
  Transmission Date: 20140711
  Serious: Yes (Death, Hospitalization)
  Sender: FDA-Public Use
  Company Number: CA-GLAXOSMITHKLINE-A1049941A

PATIENT
  Sex: Male

DRUGS (6)
  1. REVOLADE [Suspect]
     Indication: IMMUNE THROMBOCYTOPENIC PURPURA
     Dosage: 25MG PER DAY
     Route: 048
     Dates: start: 20130306, end: 20130913
  2. ASA [Concomitant]
     Indication: CORONARY ARTERY DISEASE
     Dosage: 81MG PER DAY
     Route: 048
  3. LIPITOR [Concomitant]
     Indication: HYPERCHOLESTEROLAEMIA
     Dosage: 20MG PER DAY
     Route: 048
  4. BISOPROLOL [Concomitant]
     Indication: CORONARY ARTERY DISEASE
     Dosage: 2.5MG PER DAY
     Route: 048
  5. ROCALTROL [Concomitant]
     Indication: RENAL FAILURE
     Dosage: .25MCG THREE TIMES PER WEEK
     Route: 048
  6. VITAMIN D [Concomitant]
     Dosage: 1000MG PER DAY

REACTIONS (4)
  - Cardiac arrest [Fatal]
  - Adverse event [Unknown]
  - Cardiac failure congestive [Unknown]
  - Device malfunction [Unknown]
